FAERS Safety Report 7443870-5 (Version None)
Quarter: 2011Q2

REPORT INFORMATION
  Report Type: 
  Country: None (occurrence: None)
  Receive Date: 20110428
  Receipt Date: 20100413
  Transmission Date: 20111010
  Serious: No
  Sender: FDA-Public Use
  Company Number: US-BAYER-201020127NA

PATIENT
  Age: 40 Year
  Sex: Female

DRUGS (1)
  1. YAZ [Suspect]
     Indication: MENSTRUAL CYCLE MANAGEMENT
     Dosage: UNK

REACTIONS (2)
  - ABDOMINAL DISTENSION [None]
  - AMENORRHOEA [None]
